FAERS Safety Report 16309802 (Version 1)
Quarter: 2019Q2

REPORT INFORMATION
  Report Type: Spontaneous
  Country: US (occurrence: US)
  Receive Date: 20190514
  Receipt Date: 20190514
  Transmission Date: 20190711
  Serious: Yes (Hospitalization)
  Sender: FDA-Public Use
  Company Number: US-SA-2019SA129247

PATIENT
  Age: 69 Year
  Sex: Male

DRUGS (1)
  1. SEVELAMER SALT NOT SPECIFIED [Suspect]
     Active Substance: SEVELAMER
     Indication: CHRONIC KIDNEY DISEASE
     Dosage: UNK

REACTIONS (6)
  - Bezoar [Recovered/Resolved]
  - Crystal deposit intestine [Recovered/Resolved]
  - Eosinophilia [Recovered/Resolved]
  - Abdominal pain [Recovered/Resolved]
  - Intestinal mass [Recovered/Resolved]
  - Colitis [Recovered/Resolved]
